FAERS Safety Report 23232219 (Version 1)
Quarter: 2023Q4

REPORT INFORMATION
  Report Type: Spontaneous
  Country: KR (occurrence: KR)
  Receive Date: 20231127
  Receipt Date: 20231127
  Transmission Date: 20240109
  Serious: Yes (Other)
  Sender: FDA-Public Use
  Company Number: KR-TAKEDA-2023TUS113315

PATIENT
  Age: 62 Year
  Sex: Female

DRUGS (5)
  1. ADCETRIS [Suspect]
     Active Substance: BRENTUXIMAB VEDOTIN
     Indication: Angioimmunoblastic T-cell lymphoma
     Dosage: 1.8 MILLIGRAM/KILOGRAM
     Route: 065
     Dates: start: 20230201, end: 20230517
  2. ADRIAMYCIN [Suspect]
     Active Substance: DOXORUBICIN HYDROCHLORIDE
     Indication: Angioimmunoblastic T-cell lymphoma
     Dosage: 50 MILLIGRAM/SQ. METER
     Route: 065
     Dates: start: 20230201
  3. CYCLOPHOSPHAMIDE [Suspect]
     Active Substance: CYCLOPHOSPHAMIDE
     Indication: Angioimmunoblastic T-cell lymphoma
     Dosage: 750 MILLIGRAM/SQ. METER
     Route: 065
     Dates: start: 20230201
  4. PREDNISOLONE [Suspect]
     Active Substance: PREDNISOLONE
     Indication: Angioimmunoblastic T-cell lymphoma
     Dosage: 100 MILLIGRAM
     Route: 065
  5. DULASTIN [Concomitant]
     Indication: Prophylaxis
     Dosage: 60 MILLIGRAM/SQ. METER
     Route: 065
     Dates: start: 20230201

REACTIONS (4)
  - Neuropathy peripheral [Unknown]
  - Neutropenia [Unknown]
  - Angioimmunoblastic T-cell lymphoma [Unknown]
  - Oral candidiasis [Unknown]

NARRATIVE: CASE EVENT DATE: 20230208
